FAERS Safety Report 20626379 (Version 1)
Quarter: 2022Q1

REPORT INFORMATION
  Report Type: Spontaneous
  Country: US (occurrence: US)
  Receive Date: 20220323
  Receipt Date: 20220323
  Transmission Date: 20220424
  Serious: No
  Sender: FDA-Public Use
  Company Number: US-BoehringerIngelheim-2022-BI-160953

PATIENT
  Age: 50 Year
  Sex: Female

DRUGS (1)
  1. JARDIANCE [Suspect]
     Active Substance: EMPAGLIFLOZIN
     Indication: Diabetes mellitus

REACTIONS (4)
  - Drug ineffective [Unknown]
  - Vulvovaginal mycotic infection [Unknown]
  - Localised infection [Not Recovered/Not Resolved]
  - Vulvovaginal dryness [Unknown]
